FAERS Safety Report 6570281-7 (Version None)
Quarter: 2010Q1

REPORT INFORMATION
  Report Type: 
  Country: None (occurrence: None)
  Receive Date: 20100204
  Receipt Date: 20100127
  Transmission Date: 20100710
  Serious: Yes (Other)
  Sender: FDA-Public Use
  Company Number: AT-PFIZER INC-2010010625

PATIENT
  Sex: Female

DRUGS (1)
  1. DALACIN [Suspect]
     Dosage: 300 MG, UNK
     Route: 048
     Dates: start: 20100126

REACTIONS (1)
  - SYNCOPE [None]
